FAERS Safety Report 22340989 (Version 2)
Quarter: 2023Q2

REPORT INFORMATION
  Report Type: Spontaneous
  Country: AT (occurrence: AT)
  Receive Date: 20230518
  Receipt Date: 20230607
  Transmission Date: 20230722
  Serious: Yes (Life-Threatening, Hospitalization, Other)
  Sender: FDA-Public Use
  Company Number: AT-009507513-2302AUT005760

PATIENT
  Age: 49 Year
  Sex: Female

DRUGS (5)
  1. PEMBROLIZUMAB [Suspect]
     Active Substance: PEMBROLIZUMAB
     Indication: Triple negative breast cancer
     Dosage: 200 MG, EVERY 3 WEEKS
     Dates: start: 20211214, end: 20220131
  2. PEMBROLIZUMAB [Suspect]
     Active Substance: PEMBROLIZUMAB
     Dosage: 200 MG
     Dates: start: 20220201, end: 20220201
  3. CARBOPLATIN [Concomitant]
     Active Substance: CARBOPLATIN
     Indication: Triple negative breast cancer
     Dosage: UNK UNK, WEEKLY 8 OF 12 PLANNED CYCLES
     Dates: end: 20220201
  4. PACLITAXEL [Concomitant]
     Active Substance: PACLITAXEL
     Indication: Triple negative breast cancer
     Dosage: UNK, WEEKLY
     Dates: end: 20220201
  5. PACLITAXEL [Concomitant]
     Active Substance: PACLITAXEL
     Dosage: UNK CYCLIC
     Dates: start: 20220222

REACTIONS (6)
  - Immune-mediated myocarditis [Recovered/Resolved]
  - Coronary artery dissection [Recovered/Resolved]
  - Vasculitis [Unknown]
  - Cardiac failure [Recovered/Resolved]
  - Left ventricular dysfunction [Unknown]
  - Procalcitonin increased [Unknown]
